FAERS Safety Report 9270856 (Version 4)
Quarter: 2013Q3

REPORT INFORMATION
  Report Type: Spontaneous
  Country: US (occurrence: US)
  Receive Date: 20130503
  Receipt Date: 20130719
  Transmission Date: 20140515
  Serious: Yes (Hospitalization)
  Sender: FDA-Public Use
  Company Number: US-GILEAD-2013-0074584

PATIENT
  Sex: Female

DRUGS (13)
  1. LETAIRIS [Suspect]
     Indication: PULMONARY HYPERTENSION
     Dosage: 10 MG, QD
     Dates: start: 20100628, end: 20130409
  2. LETAIRIS [Suspect]
     Dosage: 10 MG, QD
     Route: 048
     Dates: start: 20130501, end: 20130507
  3. REVATIO [Concomitant]
  4. ALDACTONE                          /00006201/ [Concomitant]
     Dosage: UNK
     Route: 048
     Dates: start: 20120828
  5. FLONASE [Concomitant]
     Dosage: UNK
     Route: 045
     Dates: start: 20120516
  6. IRON [Concomitant]
     Dosage: UNK
     Route: 048
     Dates: start: 20120806
  7. KLONOPIN [Concomitant]
     Dosage: UNK
     Dates: start: 20130416
  8. KAPIDEX [Concomitant]
     Dosage: UNK
     Route: 048
     Dates: start: 20121130
  9. LASIX                              /00032601/ [Concomitant]
     Dosage: UNK
     Route: 048
     Dates: start: 20121130
  10. LEXAPRO [Concomitant]
     Dosage: UNK
     Route: 048
     Dates: start: 20130318
  11. MOTRIN [Concomitant]
     Dosage: UNK
     Route: 048
     Dates: start: 20120726
  12. OXYGEN [Concomitant]
  13. SPIRIVA [Concomitant]
     Dosage: UNK
     Route: 055
     Dates: start: 20081209

REACTIONS (3)
  - Hepatic encephalopathy [Unknown]
  - Renal failure acute [Unknown]
  - Liver disorder [None]
